FAERS Safety Report 9705496 (Version 1)
Quarter: 2013Q4

REPORT INFORMATION
  Report Type: Spontaneous
  Country: GB (occurrence: GB)
  Receive Date: 20131122
  Receipt Date: 20131122
  Transmission Date: 20140711
  Serious: Yes (Hospitalization)
  Sender: FDA-Public Use
  Company Number: GB-009507513-1311GBR007806

PATIENT
  Age: 1 Year
  Sex: Male

DRUGS (2)
  1. SINGULAIR PAEDIATRIC 4MG CHEWABLE TABLETS [Suspect]
     Indication: WHEEZING
     Route: 065
  2. FLUTICASONE [Concomitant]
     Indication: WHEEZING
     Route: 065

REACTIONS (1)
  - Wheezing [Unknown]
